FAERS Safety Report 4421105-5 (Version None)
Quarter: 2004Q3

REPORT INFORMATION
  Report Type: 
  Country: None (occurrence: None)
  Receive Date: 20040803
  Receipt Date: 20040723
  Transmission Date: 20050211
  Serious: Yes (Hospitalization)
  Sender: FDA-Public Use
  Company Number: US-SHR-03-002356

PATIENT
  Age: 58 Year
  Sex: Male
  Weight: 86.2 kg

DRUGS (6)
  1. BETASERON [Suspect]
     Indication: MULTIPLE SCLEROSIS
     Dosage: 8 MIU, EVERY 2D, SUBCUTANEOUS
     Route: 058
     Dates: start: 19940801, end: 20021101
  2. BETASERON [Suspect]
     Indication: MULTIPLE SCLEROSIS
     Dosage: 8 MIU, EVERY 2D, SUBCUTANEOUS
     Route: 058
     Dates: start: 20021215
  3. ZOCOR [Concomitant]
  4. TOPROL-XL [Concomitant]
  5. TINZANADINE [Concomitant]
  6. IBUPROFEN [Concomitant]

REACTIONS (11)
  - ABASIA [None]
  - ABDOMINAL DISTENSION [None]
  - ASTHENIA [None]
  - FALL [None]
  - HIP FRACTURE [None]
  - HYPERTONIA [None]
  - NERVOUSNESS [None]
  - OEDEMA PERIPHERAL [None]
  - RENAL FAILURE [None]
  - THROMBOSIS [None]
  - UROSEPSIS [None]
